FAERS Safety Report 16498809 (Version 1)
Quarter: 2019Q2

REPORT INFORMATION
  Report Type: Spontaneous
  Country: NG (occurrence: NG)
  Receive Date: 20190630
  Receipt Date: 20190630
  Transmission Date: 20190711
  Serious: Yes (Death, Hospitalization, Other)
  Sender: FDA-Public Use
  Company Number: NG-JNJFOC-20190620429

PATIENT
  Sex: Male

DRUGS (3)
  1. ABIRATERONE ACETATE FILM-COATED TABLET [Suspect]
     Active Substance: ABIRATERONE ACETATE
     Route: 048
     Dates: end: 201901
  2. ABIRATERONE ACETATE FILM-COATED TABLET [Suspect]
     Active Substance: ABIRATERONE ACETATE
     Indication: PROSTATE CANCER
     Route: 048
     Dates: start: 201812
  3. PREDNISOLONE. [Suspect]
     Active Substance: PREDNISOLONE
     Indication: PROSTATE CANCER
     Route: 065
     Dates: start: 201812, end: 201901

REACTIONS (2)
  - Dialysis [Unknown]
  - Prostate cancer [Fatal]

NARRATIVE: CASE EVENT DATE: 2019
